FAERS Safety Report 4824375-4 (Version None)
Quarter: 2005Q4

REPORT INFORMATION
  Report Type: 
  Country: None (occurrence: None)
  Receive Date: 20051108
  Receipt Date: 20051031
  Transmission Date: 20060501
  Serious: Yes (Other)
  Sender: FDA-Public Use
  Company Number: USA0509109490

PATIENT
  Age: 73 Year
  Sex: Female

DRUGS (1)
  1. CYMBALTA [Suspect]
     Indication: NEURALGIA
     Dosage: 60 MG DAY

REACTIONS (2)
  - EXTRAPYRAMIDAL DISORDER [None]
  - MUSCLE TWITCHING [None]
